FAERS Safety Report 11449604 (Version 9)
Quarter: 2017Q2

REPORT INFORMATION
  Report Type: Report from Study
  Country: US (occurrence: US)
  Receive Date: 20150903
  Receipt Date: 20170524
  Transmission Date: 20170829
  Serious: Yes (Hospitalization, Other)
  Sender: FDA-Public Use
  Company Number: US-UCBSA-2014011959

PATIENT
  Age: 55 Year
  Sex: Male

DRUGS (17)
  1. LEVETIRACETAM. [Suspect]
     Active Substance: LEVETIRACETAM
     Indication: SEIZURE
     Dosage: 1000MG/3 DAILY
     Route: 048
     Dates: start: 2004
  2. VIMPAT [Suspect]
     Active Substance: LACOSAMIDE
     Indication: EPILEPSY
     Dosage: 100 MG, 2X/DAY (BID) (EXP DATE: 30-JUN-2019, 31-JUL-2019)
     Route: 048
     Dates: start: 20120423, end: 2015
  3. LISINOPRIL. [Concomitant]
     Active Substance: LISINOPRIL
     Indication: PRODUCT USED FOR UNKNOWN INDICATION
     Dosage: 20 MG DAILY
     Route: 048
  4. VIMPAT [Suspect]
     Active Substance: LACOSAMIDE
     Dosage: 50 MG, 2X/DAY (BID)
     Route: 048
  5. CELEXA [Concomitant]
     Active Substance: CITALOPRAM HYDROBROMIDE
     Indication: NEURALGIA
  6. LEVETIRACETAM. [Suspect]
     Active Substance: LEVETIRACETAM
     Dosage: 1000 MG/ 2 DAILY  (EXP DATE: 30-APR-2016)
     Route: 048
     Dates: end: 2015
  7. VIMPAT [Suspect]
     Active Substance: LACOSAMIDE
     Dosage: INCREASED DOSE (EXPIRY DATE- 18-SEP-2015)
     Route: 048
     Dates: start: 20150402, end: 2015
  8. VIMPAT [Suspect]
     Active Substance: LACOSAMIDE
     Dosage: 1 DF, ONCE DAILY (QD)
     Route: 048
     Dates: start: 2015, end: 20160221
  9. ATENOLOL. [Concomitant]
     Active Substance: ATENOLOL
     Indication: PRODUCT USED FOR UNKNOWN INDICATION
     Dosage: 50 MG DAILY
     Route: 048
  10. CELEXA [Concomitant]
     Active Substance: CITALOPRAM HYDROBROMIDE
     Indication: ANXIETY
  11. CITALOPRAM [Concomitant]
     Active Substance: CITALOPRAM HYDROBROMIDE
     Indication: PRODUCT USED FOR UNKNOWN INDICATION
     Dosage: 40 MG DAILY
     Route: 048
  12. LEVETIRACETAM. [Suspect]
     Active Substance: LEVETIRACETAM
     Dosage: 2000 MG IN THE MORNING AND 1000 MG AT NIGHT
     Route: 048
  13. HYDROCHLOROTHIAZIDE. [Concomitant]
     Active Substance: HYDROCHLOROTHIAZIDE
     Indication: HYPOTENSION
     Dosage: UNK
  14. CELEXA [Concomitant]
     Active Substance: CITALOPRAM HYDROBROMIDE
     Indication: SEIZURE
  15. LEVETIRACETAM. [Suspect]
     Active Substance: LEVETIRACETAM
     Dosage: INCREASED DOSE
     Route: 048
     Dates: start: 2015
  16. KLOR-CON [Concomitant]
     Active Substance: POTASSIUM CHLORIDE
     Indication: PRODUCT USED FOR UNKNOWN INDICATION
     Dosage: UNK
  17. LAMOTRIGINE. [Concomitant]
     Active Substance: LAMOTRIGINE
     Indication: SEIZURE
     Dosage: 25 MG, 2X/DAY (BID)
     Route: 048
     Dates: start: 20160823

REACTIONS (17)
  - Decreased appetite [Not Recovered/Not Resolved]
  - Bipolar disorder [Not Recovered/Not Resolved]
  - Lip injury [Unknown]
  - Overdose [Unknown]
  - Aura [Not Recovered/Not Resolved]
  - Fall [Unknown]
  - Headache [Not Recovered/Not Resolved]
  - Abasia [Unknown]
  - Nausea [Not Recovered/Not Resolved]
  - Vomiting [Not Recovered/Not Resolved]
  - Seizure [Not Recovered/Not Resolved]
  - Wrist fracture [Not Recovered/Not Resolved]
  - Generalised tonic-clonic seizure [Recovered/Resolved]
  - Petit mal epilepsy [Not Recovered/Not Resolved]
  - Drug ineffective [Unknown]
  - Dizziness [Not Recovered/Not Resolved]
  - Drug dose omission [Unknown]

NARRATIVE: CASE EVENT DATE: 2011
